FAERS Safety Report 19518691 (Version 1)
Quarter: 2021Q3

REPORT INFORMATION
  Report Type: Spontaneous
  Country: US (occurrence: US)
  Receive Date: 20210712
  Receipt Date: 20210712
  Transmission Date: 20211014
  Serious: No
  Sender: FDA-Public Use
  Company Number: US-ALLERGAN-2120911US

PATIENT
  Age: 59 Year
  Sex: Female

DRUGS (5)
  1. UBRELVY [Suspect]
     Active Substance: UBROGEPANT
     Dosage: UNK UNK, PRN
  2. UBRELVY [Suspect]
     Active Substance: UBROGEPANT
     Dosage: UNK UNK, PRN
  3. TOPIRAMATE. [Concomitant]
     Active Substance: TOPIRAMATE
     Dosage: 50 MG, QD
     Dates: start: 20210518
  4. TOPIRAMATE. [Concomitant]
     Active Substance: TOPIRAMATE
     Dosage: 25 MG, QD
     Dates: start: 20210506, end: 20210517
  5. UBRELVY [Suspect]
     Active Substance: UBROGEPANT
     Indication: MIGRAINE
     Dosage: 100 MG
     Route: 065
     Dates: start: 20210519

REACTIONS (1)
  - Drug ineffective [Unknown]
